FAERS Safety Report 7545081-1 (Version None)
Quarter: 2011Q2

REPORT INFORMATION
  Report Type: 
  Country: None (occurrence: None)
  Receive Date: 20110610
  Receipt Date: 20110610
  Transmission Date: 20111010
  Serious: Yes (Other)
  Sender: FDA-Public Use
  Company Number: None

PATIENT
  Sex: Male
  Weight: 65.7716 kg

DRUGS (2)
  1. ULORIC [Suspect]
     Indication: GOUT
     Dosage: 1 A DAY
     Dates: start: 20110502
  2. ULORIC [Suspect]
     Indication: GOUT
     Dosage: 1 A DAY
     Dates: start: 20110514

REACTIONS (3)
  - RASH [None]
  - PRURITUS [None]
  - NAUSEA [None]
